FAERS Safety Report 10098896 (Version 2)
Quarter: 2014Q2

REPORT INFORMATION
  Report Type: Report from Study
  Country: DE (occurrence: DE)
  Receive Date: 20140423
  Receipt Date: 20140423
  Transmission Date: 20141212
  Serious: Yes (Hospitalization, Other)
  Sender: FDA-Public Use
  Company Number: PHHO2014DE004418

PATIENT
  Sex: 0

DRUGS (9)
  1. EVEROLIMUS [Suspect]
     Indication: RENAL TRANSPLANT
     Dosage: 2.0 MG, UNK (DAILY)
     Dates: start: 20130307, end: 20130308
  2. EVEROLIMUS [Suspect]
     Dosage: 2.5 MG, UNK (DAILY)
     Dates: start: 20130309, end: 20130310
  3. EVEROLIMUS [Suspect]
     Dosage: 3 MG, UNK (DAILY)
     Dates: start: 20130311, end: 20130311
  4. EVEROLIMUS [Suspect]
     Dosage: 2.0 MG, UNK (DAILY)
     Dates: start: 20130312, end: 20130313
  5. EVEROLIMUS [Suspect]
     Dosage: 2.5 MG, UNK (DAILY)
     Dates: start: 20130314, end: 20130314
  6. EVEROLIMUS [Suspect]
     Dosage: 1.5 MG, UNK (DAILY)
     Dates: start: 20130315, end: 20130315
  7. TACROLIMUS [Suspect]
     Indication: RENAL TRANSPLANT
     Dosage: 3.5 MG, UNK (PER DAY)
     Dates: start: 20130306
  8. PREDNISOLONE SANDOZ [Suspect]
     Indication: RENAL TRANSPLANT
     Dosage: 5 MG, UNK (PER DAY)
     Dates: start: 20130306
  9. CELLCEPT [Suspect]
     Indication: PROPHYLAXIS AGAINST TRANSPLANT REJECTION
     Dosage: 2 MG, PER DAY

REACTIONS (1)
  - Pneumonia [Recovered/Resolved]
